FAERS Safety Report 6647297-5 (Version None)
Quarter: 2010Q1

REPORT INFORMATION
  Report Type: 
  Country: None (occurrence: None)
  Receive Date: 20100323
  Receipt Date: 20100312
  Transmission Date: 20100710
  Serious: Yes (Hospitalization)
  Sender: FDA-Public Use
  Company Number: B0615438A

PATIENT
  Sex: Female
  Weight: 55 kg

DRUGS (8)
  1. LAPATINIB [Suspect]
     Dosage: 1250MG PER DAY
     Route: 048
     Dates: start: 20091125, end: 20091228
  2. XELODA [Suspect]
     Dosage: 1500MG PER DAY
     Route: 048
     Dates: start: 20091125, end: 20091228
  3. METOPIMAZINE [Concomitant]
  4. PREDNISOLONE [Concomitant]
     Route: 048
     Dates: start: 20091116
  5. LEXOMIL [Concomitant]
     Indication: ANXIETY
     Route: 048
     Dates: start: 19980101
  6. ALDACTAZINE [Concomitant]
     Indication: BLOOD PRESSURE
     Route: 048
     Dates: start: 19950101
  7. NEXIUM [Concomitant]
     Route: 048
     Dates: start: 19980101
  8. INSULIN [Concomitant]
     Indication: DIABETES MELLITUS
     Route: 058
     Dates: start: 20091210

REACTIONS (9)
  - ANAEMIA [None]
  - DECREASED APPETITE [None]
  - DEHYDRATION [None]
  - DIARRHOEA [None]
  - ELECTROLYTE DEPLETION [None]
  - HYPOCALCAEMIA [None]
  - HYPOKALAEMIA [None]
  - HYPONATRAEMIA [None]
  - VOMITING [None]
